FAERS Safety Report 9947200 (Version 1)
Quarter: 2014Q1

REPORT INFORMATION
  Report Type: Report from Study
  Country: US (occurrence: US)
  Receive Date: 20140303
  Receipt Date: 20140303
  Transmission Date: 20141002
  Serious: No
  Sender: FDA-Public Use
  Company Number: US-ABBVIE-13P-163-1062010-00

PATIENT
  Age: 45 Year
  Sex: Female

DRUGS (1)
  1. HUMIRA [Suspect]
     Indication: RHEUMATOID ARTHRITIS

REACTIONS (10)
  - Activities of daily living impaired [Unknown]
  - Unevaluable event [Unknown]
  - Unevaluable event [Unknown]
  - Unevaluable event [Unknown]
  - Dependence [Unknown]
  - Unevaluable event [Unknown]
  - Feeling abnormal [Unknown]
  - Pain [Unknown]
  - Anxiety [Unknown]
  - Physical disability [Unknown]
